FAERS Safety Report 6988508-6 (Version None)
Quarter: 2010Q3

REPORT INFORMATION
  Report Type: 
  Country: None (occurrence: None)
  Receive Date: 20100916
  Receipt Date: 20100908
  Transmission Date: 20110219
  Serious: Yes (Other)
  Sender: FDA-Public Use
  Company Number: DE-BAYER-201039101GPV

PATIENT
  Age: 21 Year
  Sex: Female

DRUGS (25)
  1. SORAFENIB [Suspect]
     Indication: ACUTE MYELOID LEUKAEMIA
     Route: 048
     Dates: start: 20080201
  2. SORAFENIB [Suspect]
     Route: 048
  3. FLUDARABINE [Suspect]
     Indication: STEM CELL TRANSPLANT
     Dates: start: 20061101
  4. PREDNISOLONE [Suspect]
     Indication: IMMUNOSUPPRESSION
     Dosage: HIGH DOSE; COULD BE REDUCED TO 10 MG/DAY
  5. DAUNORUBICIN HCL [Suspect]
     Indication: ACUTE MYELOID LEUKAEMIA
     Dates: start: 20060101
  6. DAUNORUBICIN HCL [Suspect]
     Dates: start: 20060101
  7. CYTARABINE [Suspect]
     Indication: STEM CELL TRANSPLANT
     Dates: start: 20060101
  8. CYTARABINE [Suspect]
     Dates: start: 20060101
  9. ARAC [Suspect]
     Indication: ACUTE MYELOID LEUKAEMIA
     Dates: start: 20060101
  10. BUSULPHANE [Suspect]
     Indication: PROPHYLAXIS AGAINST TRANSPLANT REJECTION
     Dates: start: 20060501
  11. CYCLOPHOSPHAMIDE [Suspect]
     Indication: PROPHYLAXIS AGAINST TRANSPLANT REJECTION
     Dates: start: 20060501
  12. THYMOGLOBULIN [Suspect]
     Indication: STEM CELL TRANSPLANT
     Dates: start: 20060501
  13. CYTARABINE [Suspect]
     Indication: PROPHYLAXIS AGAINST TRANSPLANT REJECTION
     Dates: start: 20061101
  14. IDARUBICIN HCL [Suspect]
     Indication: PROPHYLAXIS AGAINST TRANSPLANT REJECTION
     Dates: start: 20061101
  15. CYCLOSPORINE [Suspect]
     Indication: PROPHYLAXIS AGAINST GRAFT VERSUS HOST DISEASE
     Dates: start: 20060501
  16. CYCLOSPORINE [Suspect]
  17. CYCLOSPORINE [Suspect]
     Dates: start: 20061101
  18. MYCOPHENOLATE MOFETIL [Suspect]
     Indication: IMMUNOSUPPRESSION
  19. DACLIZUMAB [Suspect]
     Indication: IMMUNOSUPPRESSION
  20. RITUXIMAB [Suspect]
     Indication: IMMUNOSUPPRESSION
  21. METHOTREXATE [Concomitant]
     Indication: PROPHYLAXIS AGAINST GRAFT VERSUS HOST DISEASE
     Dates: start: 20060501
  22. METHOTREXATE [Concomitant]
     Dates: start: 20060501
  23. METHOTREXATE [Concomitant]
     Dates: start: 20060501
  24. HEMATOPOETIC PROGENITOR CELLS HUMAN [Concomitant]
     Indication: ACUTE MYELOID LEUKAEMIA
  25. HEMATOPOETIC PROGENITOR CELLS HUMAN [Concomitant]

REACTIONS (10)
  - ACUTE GRAFT VERSUS HOST DISEASE [None]
  - DIARRHOEA [None]
  - ILEAL PERFORATION [None]
  - ILEUS [None]
  - LEUKOPENIA [None]
  - MUCORMYCOSIS [None]
  - PERITONEAL INFECTION [None]
  - RASH [None]
  - SMALL INTESTINAL STENOSIS [None]
  - THROMBOCYTOPENIA [None]
